FAERS Safety Report 11385470 (Version 2)
Quarter: 2015Q3

REPORT INFORMATION
  Report Type: Spontaneous
  Country: PS (occurrence: PS)
  Receive Date: 20150815
  Receipt Date: 20150828
  Transmission Date: 20151125
  Serious: Yes (Other)
  Sender: FDA-Public Use
  Company Number: PHHY2015PS091421

PATIENT
  Age: 25 Year
  Sex: Female

DRUGS (4)
  1. TASIGNA [Suspect]
     Active Substance: NILOTINIB
     Dosage: 400 MG, BID
     Route: 048
  2. HIDROXIUREA [Concomitant]
     Active Substance: HYDROXYUREA
     Indication: PLATELET COUNT INCREASED
     Dosage: UNK
     Route: 048
     Dates: start: 20150710, end: 20150723
  3. TASIGNA [Suspect]
     Active Substance: NILOTINIB
     Indication: CHRONIC MYELOID LEUKAEMIA
     Dosage: 400 MG, BID
     Route: 048
     Dates: start: 20150710, end: 20150726
  4. OMEPRAZOLE. [Concomitant]
     Active Substance: OMEPRAZOLE
     Indication: PRODUCT USED FOR UNKNOWN INDICATION
     Dosage: 20 MG, QD
     Route: 065

REACTIONS (1)
  - Bone marrow failure [Recovering/Resolving]

NARRATIVE: CASE EVENT DATE: 20150725
